FAERS Safety Report 9107300 (Version 1)
Quarter: 2013Q1

REPORT INFORMATION
  Report Type: Spontaneous
  Country: JP (occurrence: JP)
  Receive Date: 20130221
  Receipt Date: 20130221
  Transmission Date: 20140127
  Serious: Yes (Other)
  Sender: FDA-Public Use
  Company Number: JP-WATSON-2013-02770

PATIENT
  Age: 18 Year
  Sex: Male

DRUGS (5)
  1. TACROLIMUS (UNKNOWN) [Suspect]
     Indication: INTESTINAL TRANSPLANT
     Dosage: UNK, UNKNOWN
     Route: 042
  2. TACROLIMUS (UNKNOWN) [Suspect]
     Dosage: UNK, UNKNOWN
     Route: 048
  3. METHYLPREDNISOLONE ACETATE [Suspect]
     Indication: INTESTINAL TRANSPLANT
     Dosage: 10 MG/KG;1.25X4 MG/KG,1X4,0.75X4,0.5X4MG/KG EVERY 6 HRS,THEN 12 HRS.
     Route: 042
  4. METHYLPREDNISOLONE ACETATE [Suspect]
     Indication: TRANSPLANT REJECTION
     Dosage: 10-20 MG/KG/DAY FOR 3 DAYS, GRADUALLY TAPERED OFF
     Route: 065
  5. DACLIZUMAB [Suspect]
     Indication: INTESTINAL TRANSPLANT
     Dosage: UNK, UNKNOWN
     Route: 065

REACTIONS (5)
  - Aspergillus infection [Recovered/Resolved]
  - Cytomegalovirus infection [Recovered/Resolved]
  - Peritonitis bacterial [Recovered/Resolved]
  - Hepatic function abnormal [Recovered/Resolved]
  - Liver transplant [None]
